FAERS Safety Report 21141909 (Version 1)
Quarter: 2022Q3

REPORT INFORMATION
  Report Type: Spontaneous
  Country: NO (occurrence: NO)
  Receive Date: 20220728
  Receipt Date: 20220728
  Transmission Date: 20221027
  Serious: Yes (Hospitalization, Other)
  Sender: FDA-Public Use
  Company Number: None

PATIENT
  Age: 24 Year
  Sex: Male
  Weight: 100 kg

DRUGS (3)
  1. ZOLOFT [Suspect]
     Active Substance: SERTRALINE HYDROCHLORIDE
     Indication: Depression
     Dosage: 100 MG, 2X/DAY (EVERY 12 HOURS)
     Dates: start: 202106, end: 202201
  2. ZYPREXA [Concomitant]
     Active Substance: OLANZAPINE
     Indication: Tachyphrenia
     Dosage: 5 MG, 1X/DAY
     Dates: start: 202106, end: 202111
  3. ZYPREXA [Concomitant]
     Active Substance: OLANZAPINE
     Indication: Anxiety

REACTIONS (7)
  - Suicidal ideation [Recovering/Resolving]
  - Suicidal behaviour [Recovering/Resolving]
  - Concomitant disease aggravated [Recovering/Resolving]
  - Emotional poverty [Recovering/Resolving]
  - Sexual dysfunction [Not Recovered/Not Resolved]
  - Libido decreased [Not Recovered/Not Resolved]
  - Aggression [Unknown]

NARRATIVE: CASE EVENT DATE: 20210601
